FAERS Safety Report 7669447-4 (Version None)
Quarter: 2011Q3

REPORT INFORMATION
  Report Type: 
  Country: None (occurrence: None)
  Receive Date: 20110808
  Receipt Date: 20110730
  Transmission Date: 20111222
  Serious: Yes (Life-Threatening, Hospitalization)
  Sender: FDA-Public Use
  Company Number: US-ROCHE-795096

PATIENT
  Sex: Female
  Weight: 70 kg

DRUGS (1)
  1. BLINDED BEVACIZUMAB [Suspect]
     Indication: OVARIAN EPITHELIAL CANCER
     Dosage: TOTAL DOSE: 1015 MG.
     Route: 042
     Dates: start: 20090810

REACTIONS (3)
  - ATRIOVENTRICULAR BLOCK [None]
  - DYSARTHRIA [None]
  - MYOCARDIAL INFARCTION [None]
